FAERS Safety Report 8167283-6 (Version None)
Quarter: 2012Q1

REPORT INFORMATION
  Report Type: 
  Country: None (occurrence: None)
  Receive Date: 20120227
  Receipt Date: 20120223
  Transmission Date: 20120608
  Serious: No
  Sender: FDA-Public Use
  Company Number: US-PFIZER INC-2012049061

PATIENT
  Sex: Female
  Weight: 88.889 kg

DRUGS (2)
  1. IBUPROFEN (ADVIL) [Suspect]
     Indication: BACK PAIN
     Dosage: UNK
     Dates: start: 20120217, end: 20120218
  2. IBUPROFEN (ADVIL) [Suspect]
     Indication: MUSCULOSKELETAL PAIN

REACTIONS (4)
  - ORAL DISCOMFORT [None]
  - ORAL DISORDER [None]
  - TONGUE DISCOLOURATION [None]
  - ABDOMINAL DISCOMFORT [None]
